FAERS Safety Report 10792362 (Version 1)
Quarter: 2015Q1

REPORT INFORMATION
  Report Type: Spontaneous
  Country: US (occurrence: US)
  Receive Date: 20150213
  Receipt Date: 20150213
  Transmission Date: 20150721
  Serious: No
  Sender: FDA-Public Use
  Company Number: US-GLAXOSMITHKLINE-A1082156A

PATIENT

DRUGS (19)
  1. ULTRAM [Concomitant]
     Active Substance: TRAMADOL HYDROCHLORIDE
  2. MULTIVITAMIN [Concomitant]
     Active Substance: VITAMINS
  3. ADVAIR HFA [Concomitant]
     Active Substance: FLUTICASONE PROPIONATE\SALMETEROL XINAFOATE
  4. JANUVIA [Concomitant]
     Active Substance: SITAGLIPTIN PHOSPHATE
  5. DIGOXIN. [Concomitant]
     Active Substance: DIGOXIN
  6. ZINC [Concomitant]
     Active Substance: ZINC\ZINC CHLORIDE
  7. AVANDIA [Suspect]
     Active Substance: ROSIGLITAZONE MALEATE
     Indication: TYPE 2 DIABETES MELLITUS
     Route: 048
     Dates: end: 201404
  8. MAGNESIUM [Concomitant]
     Active Substance: MAGNESIUM
  9. LASIX [Concomitant]
     Active Substance: FUROSEMIDE
  10. ASPIRIN. [Concomitant]
     Active Substance: ASPIRIN
  11. ALDACTONE [Concomitant]
     Active Substance: SPIRONOLACTONE
  12. SIMVASTATIN. [Concomitant]
     Active Substance: SIMVASTATIN
  13. THYROID MEDICATION [Concomitant]
     Active Substance: UNSPECIFIED INGREDIENT
  14. TRICOR [Concomitant]
     Active Substance: FENOFIBRATE
  15. IBUPROFEN. [Concomitant]
     Active Substance: IBUPROFEN
  16. POTASSIUM [Concomitant]
     Active Substance: POTASSIUM
  17. METFORMIN [Concomitant]
     Active Substance: METFORMIN HYDROCHLORIDE
  18. LISINOPRIL. [Concomitant]
     Active Substance: LISINOPRIL
  19. VITAMIN B12 [Concomitant]
     Active Substance: CYANOCOBALAMIN

REACTIONS (3)
  - Nasopharyngitis [Unknown]
  - Dyspnoea [Recovered/Resolved]
  - Lung disorder [Unknown]
